FAERS Safety Report 9024286 (Version 2)
Quarter: 2013Q4

REPORT INFORMATION
  Report Type: Spontaneous
  Country: GB (occurrence: GB)
  Receive Date: 20130121
  Receipt Date: 20131101
  Transmission Date: 20140711
  Serious: Yes (Death)
  Sender: FDA-Public Use
  Company Number: PHFR2013GB000667

PATIENT
  Age: 4 Week
  Sex: Male
  Weight: 4 kg

DRUGS (2)
  1. CARBAMAZEPINE [Suspect]
     Dosage: UNK UKN, UNK
     Route: 064
  2. CARBAMAZEPINE [Suspect]
     Dosage: 600 MG, BID
     Route: 063

REACTIONS (3)
  - Death [Fatal]
  - Exposure during breast feeding [Unknown]
  - Foetal exposure during pregnancy [Unknown]
